FAERS Safety Report 13952642 (Version 1)
Quarter: 2017Q3

REPORT INFORMATION
  Report Type: Spontaneous
  Country: IT (occurrence: IT)
  Receive Date: 20170911
  Receipt Date: 20170911
  Transmission Date: 20171128
  Serious: Yes (Other)
  Sender: FDA-Public Use
  Company Number: IT-ROCHE-1987069

PATIENT
  Age: 53 Year
  Sex: Male

DRUGS (12)
  1. LANSOPRAZOLE. [Concomitant]
     Active Substance: LANSOPRAZOLE
  2. RIFAXIMIN [Concomitant]
     Active Substance: RIFAXIMIN
  3. ALLOPURINOL. [Concomitant]
     Active Substance: ALLOPURINOL
  4. SOFOSBUVIR [Suspect]
     Active Substance: SOFOSBUVIR
     Indication: CHRONIC HEPATITIS C
     Route: 065
     Dates: start: 20130611, end: 20131208
  5. LACTITOL [Concomitant]
     Active Substance: LACTITOL
  6. ALBUMIN [Concomitant]
     Active Substance: ALBUMIN HUMAN
  7. VITAMIN K [Concomitant]
     Active Substance: PHYTONADIONE
  8. RIBAVIRIN. [Suspect]
     Active Substance: RIBAVIRIN
     Indication: CHRONIC HEPATITIS C
     Route: 065
     Dates: start: 20130611
  9. POTASSIUM CANRENOATE [Concomitant]
     Active Substance: CANRENOATE POTASSIUM
  10. FUROSEMIDE. [Concomitant]
     Active Substance: FUROSEMIDE
  11. GRANULOKINE [Concomitant]
     Active Substance: FILGRASTIM
  12. TACROLIMUS. [Concomitant]
     Active Substance: TACROLIMUS

REACTIONS (5)
  - Gamma-glutamyltransferase increased [Unknown]
  - Hepatitis C [Unknown]
  - Transaminases increased [Unknown]
  - Hepatocellular carcinoma [Unknown]
  - Drug ineffective [Unknown]

NARRATIVE: CASE EVENT DATE: 20131218
